FAERS Safety Report 16187712 (Version 1)
Quarter: 2019Q2

REPORT INFORMATION
  Report Type: Spontaneous
  Country: SE (occurrence: SE)
  Receive Date: 20190412
  Receipt Date: 20190412
  Transmission Date: 20190711
  Serious: Yes (Other)
  Sender: FDA-Public Use
  Company Number: SE-ASTRAZENECA-2019SE53385

PATIENT
  Sex: Male

DRUGS (7)
  1. NITROLINGUAL [Concomitant]
     Active Substance: NITROGLYCERIN
  2. RAMIPRIL. [Concomitant]
     Active Substance: RAMIPRIL
  3. BRILIQUE [Suspect]
     Active Substance: TICAGRELOR
     Route: 048
  4. TROMBYL [Concomitant]
     Active Substance: ASPIRIN
  5. BISOPROLOL [Concomitant]
     Active Substance: BISOPROLOL
  6. ATORVASTATIN [Concomitant]
     Active Substance: ATORVASTATIN
  7. PREDNISOLONE. [Concomitant]
     Active Substance: PREDNISOLONE

REACTIONS (1)
  - Tubulointerstitial nephritis [Not Recovered/Not Resolved]
